FAERS Safety Report 6601236-1 (Version None)
Quarter: 2010Q1

REPORT INFORMATION
  Report Type: 
  Country: None (occurrence: None)
  Receive Date: 20100225
  Receipt Date: 20100216
  Transmission Date: 20100710
  Serious: Yes (Hospitalization)
  Sender: FDA-Public Use
  Company Number: US-ASTRAZENECA-2010SE06711

PATIENT
  Age: 69 Year
  Sex: Female

DRUGS (8)
  1. LISINOPRIL [Suspect]
     Route: 048
  2. OLANZAPINE [Interacting]
     Indication: MANIA
     Route: 048
  3. OLANZAPINE [Interacting]
     Route: 048
  4. LITHIUM CARBONATE [Concomitant]
     Route: 048
  5. WARFARIN SODIUM [Concomitant]
     Route: 048
  6. LEVOTHYROXINE SODIUM [Concomitant]
     Route: 048
  7. ALPRAZOLAM [Concomitant]
     Dosage: 0.25 MG TWICE DIALY AS NEEDED
     Route: 048
  8. DARIFENACIN [Concomitant]
     Route: 048

REACTIONS (2)
  - DRUG INTERACTION [None]
  - PANCREATITIS ACUTE [None]
